FAERS Safety Report 24231015 (Version 1)
Quarter: 2024Q3

REPORT INFORMATION
  Report Type: Spontaneous
  Country: JP (occurrence: JP)
  Receive Date: 20240821
  Receipt Date: 20240821
  Transmission Date: 20241017
  Serious: Yes (Other)
  Sender: RANBAXY
  Company Number: JP-SUN PHARMACEUTICAL INDUSTRIES LTD-2024RR-463353

PATIENT
  Age: 70 Year
  Sex: Female

DRUGS (3)
  1. GABAPENTIN [Suspect]
     Active Substance: GABAPENTIN
     Indication: Meningioma
     Dosage: UNK
     Route: 065
  2. SUMATRIPTAN [Suspect]
     Active Substance: SUMATRIPTAN\SUMATRIPTAN SUCCINATE
     Indication: Meningioma
     Dosage: UNK
     Route: 065
  3. MEFENAMIC ACID [Suspect]
     Active Substance: MEFENAMIC ACID
     Indication: Headache
     Dosage: UNK
     Route: 065

REACTIONS (1)
  - Disease progression [Unknown]
